FAERS Safety Report 4697105-7 (Version None)
Quarter: 2005Q2

REPORT INFORMATION
  Report Type: 
  Country: None (occurrence: None)
  Receive Date: 20050620
  Receipt Date: 20050524
  Transmission Date: 20051028
  Serious: Yes (Other)
  Sender: FDA-Public Use
  Company Number: B0382807A

PATIENT
  Age: 23 Year
  Sex: Female

DRUGS (3)
  1. LAMICTAL [Suspect]
     Indication: EPILEPSY
     Dosage: 100 MG/FOUR TIMES PER DAY/ORAL
     Route: 048
  2. LORAZEPAM [Concomitant]
  3. GABAPENTIN [Concomitant]

REACTIONS (7)
  - ANTICONVULSANT DRUG LEVEL ABOVE THERAPEUTIC [None]
  - COORDINATION ABNORMAL [None]
  - DRUG LEVEL ABOVE THERAPEUTIC [None]
  - DRUG TOXICITY [None]
  - NYSTAGMUS [None]
  - OSCILLOPSIA [None]
  - VISUAL ACUITY REDUCED [None]
